FAERS Safety Report 6621745-9 (Version None)
Quarter: 2010Q1

REPORT INFORMATION
  Report Type: 
  Country: None (occurrence: None)
  Receive Date: 20100309
  Receipt Date: 20100304
  Transmission Date: 20100710
  Serious: Yes (Hospitalization)
  Sender: FDA-Public Use
  Company Number: DE-AMGEN-UK383552

PATIENT
  Sex: Male

DRUGS (11)
  1. NPLATE [Suspect]
     Indication: IDIOPATHIC THROMBOCYTOPENIC PURPURA
     Route: 058
     Dates: start: 20090514
  2. ASPIRIN [Concomitant]
     Route: 048
  3. AMARYL [Concomitant]
     Route: 048
  4. JANUVIA [Concomitant]
     Route: 048
  5. TELMISARTAN [Concomitant]
     Route: 048
  6. DILATREND [Concomitant]
     Route: 048
  7. COTRIM [Concomitant]
     Route: 048
  8. ZOCOR [Concomitant]
     Route: 048
  9. INSULIN ACTRAPHANE HUMAN [Concomitant]
  10. CORTISONE [Concomitant]
  11. PLATELETS [Concomitant]

REACTIONS (6)
  - BRAIN CONTUSION [None]
  - BRAIN STEM INFARCTION [None]
  - FALL [None]
  - PLATELET COUNT DECREASED [None]
  - SUBARACHNOID HAEMORRHAGE [None]
  - SUBDURAL HAEMATOMA [None]
